FAERS Safety Report 22541676 (Version 1)
Quarter: 2023Q2

REPORT INFORMATION
  Report Type: Spontaneous
  Country: FI (occurrence: None)
  Receive Date: 20230609
  Receipt Date: 20230609
  Transmission Date: 20230721
  Serious: Yes (Hospitalization)
  Sender: FDA-Public Use
  Company Number: 2023A128007

PATIENT
  Age: 71 Year
  Sex: Female

DRUGS (2)
  1. QUETIAPINE FUMARATE [Suspect]
     Active Substance: QUETIAPINE FUMARATE
     Indication: Schizophrenia
     Dosage: 50-300,MG,DAILY
     Dates: start: 20230419, end: 20230517
  2. RISPERIDONE [Concomitant]
     Active Substance: RISPERIDONE
     Indication: Schizophrenia
     Dosage: 1,MG,DAILY
     Dates: start: 202108

REACTIONS (3)
  - Neutropenia [Recovering/Resolving]
  - General physical health deterioration [Recovering/Resolving]
  - Febrile infection [Recovering/Resolving]

NARRATIVE: CASE EVENT DATE: 20230517
